FAERS Safety Report 15345164 (Version 1)
Quarter: 2018Q3

REPORT INFORMATION
  Report Type: Spontaneous
  Country: US (occurrence: US)
  Receive Date: 20180903
  Receipt Date: 20180903
  Transmission Date: 20181010
  Serious: No
  Sender: FDA-Public Use
  Company Number: US-009507513-1808USA012542

PATIENT
  Age: 62 Year
  Sex: Male

DRUGS (5)
  1. DOXORUBICIN [Concomitant]
     Active Substance: DOXORUBICIN
     Indication: PERIPHERAL NERVE SHEATH TUMOUR MALIGNANT
     Dosage: UNK
  2. EVEROLIMUS. [Concomitant]
     Active Substance: EVEROLIMUS
     Indication: PERIPHERAL NERVE SHEATH TUMOUR MALIGNANT
     Dosage: UNK
  3. TRABECTEDIN [Concomitant]
     Active Substance: TRABECTEDIN
     Indication: PERIPHERAL NERVE SHEATH TUMOUR MALIGNANT
     Dosage: UNK
  4. BEVACIZUMAB. [Concomitant]
     Active Substance: BEVACIZUMAB
     Indication: PERIPHERAL NERVE SHEATH TUMOUR MALIGNANT
     Dosage: UNK
  5. TEMODAR [Suspect]
     Active Substance: TEMOZOLOMIDE
     Indication: PERIPHERAL NERVE SHEATH TUMOUR MALIGNANT
     Dosage: UNK
     Route: 048

REACTIONS (1)
  - Product use in unapproved indication [Unknown]
